FAERS Safety Report 24080210 (Version 1)
Quarter: 2024Q3

REPORT INFORMATION
  Report Type: Spontaneous
  Country: US (occurrence: None)
  Receive Date: 20240711
  Receipt Date: 20240711
  Transmission Date: 20241017
  Serious: Yes (Hospitalization, Other)
  Sender: Public
  Company Number: None

PATIENT
  Age: 65 Year
  Sex: Male
  Weight: 85.5 kg

DRUGS (1)
  1. OPDIVO [Suspect]
     Active Substance: NIVOLUMAB
     Indication: Neoplasm malignant

REACTIONS (7)
  - Hyperthyroidism [None]
  - Hypothyroidism [None]
  - Atrial fibrillation [None]
  - Palpitations [None]
  - Myocarditis [None]
  - Pneumonitis [None]
  - Stomatitis [None]

NARRATIVE: CASE EVENT DATE: 20240108
